FAERS Safety Report 5526213-3 (Version None)
Quarter: 2007Q4

REPORT INFORMATION
  Report Type: 
  Country: None (occurrence: None)
  Receive Date: 20071127
  Receipt Date: 20071122
  Transmission Date: 20080405
  Serious: Yes (Other)
  Sender: FDA-Public Use
  Company Number: JP-BRISTOL-MYERS SQUIBB COMPANY-13966155

PATIENT
  Age: 58 Year
  Sex: Female

DRUGS (12)
  1. TAXOL [Suspect]
     Indication: METASTASES TO LIVER
     Route: 041
  2. ENDOXAN TABS [Suspect]
     Indication: METASTASES TO LIVER
     Route: 048
  3. DOCETAXEL [Suspect]
     Indication: BREAST CANCER
  4. CAPECITABINE [Suspect]
     Indication: METASTASES TO LIVER
     Route: 048
  5. RADIOTHERAPY [Suspect]
  6. TAXOTERE [Concomitant]
     Route: 042
  7. TAMOXIFEN CITRATE [Concomitant]
     Route: 048
  8. TOREMIFENE [Concomitant]
     Route: 048
  9. ANASTROZOLE [Concomitant]
     Route: 048
  10. DISODIUM INCADRONATE [Concomitant]
     Route: 042
  11. MEDROXYPROGESTERONE ACETATE [Concomitant]
     Route: 048
  12. CYCLOPHOSPHAMIDE [Concomitant]

REACTIONS (1)
  - MYELODYSPLASTIC SYNDROME [None]
